FAERS Safety Report 8159978-5 (Version None)
Quarter: 2012Q1

REPORT INFORMATION
  Report Type: 
  Country: None (occurrence: None)
  Receive Date: 20120223
  Receipt Date: 20120216
  Transmission Date: 20120608
  Serious: Yes (Hospitalization)
  Sender: FDA-Public Use
  Company Number: US-GLAXOSMITHKLINE-A0886475A

PATIENT
  Sex: Male
  Weight: 87.3 kg

DRUGS (3)
  1. LIPITOR [Concomitant]
  2. AVANDIA [Suspect]
     Indication: DIABETES MELLITUS
     Route: 048
     Dates: start: 19990101, end: 20040101
  3. INSULIN [Concomitant]

REACTIONS (5)
  - CARDIAC OPERATION [None]
  - IMPLANTABLE DEFIBRILLATOR INSERTION [None]
  - STENT PLACEMENT [None]
  - CARDIAC FAILURE CONGESTIVE [None]
  - MYOCARDIAL INFARCTION [None]
